FAERS Safety Report 18145195 (Version 2)
Quarter: 2020Q4

REPORT INFORMATION
  Report Type: Spontaneous
  Country: US (occurrence: US)
  Receive Date: 20200813
  Receipt Date: 20201022
  Transmission Date: 20210113
  Serious: Yes (Other)
  Sender: FDA-Public Use
  Company Number: US-PFIZER INC-2020310364

PATIENT
  Age: 54 Year
  Sex: Male

DRUGS (2)
  1. PHENOBARBITAL. [Concomitant]
     Active Substance: PHENOBARBITAL
     Indication: SEIZURE
     Dosage: UNK
  2. PHENYTOIN SODIUM. [Suspect]
     Active Substance: PHENYTOIN SODIUM
     Indication: SEIZURE
     Dosage: 500 MG, 1X/DAY (100 MG CAPSULE, 5 CAPSULES AT NIGHT)
     Route: 048

REACTIONS (2)
  - Drug ineffective [Unknown]
  - Seizure [Unknown]
